FAERS Safety Report 9232712 (Version 2)
Quarter: 2013Q2

REPORT INFORMATION
  Report Type: Spontaneous
  Country: GB (occurrence: GB)
  Receive Date: 20130416
  Receipt Date: 20130523
  Transmission Date: 20140414
  Serious: No
  Sender: FDA-Public Use
  Company Number: GB-AMGEN-GBRSP2013025819

PATIENT
  Sex: Female

DRUGS (2)
  1. MIMPARA [Suspect]
     Indication: HYPERPARATHYROIDISM PRIMARY
     Dosage: 30 MG, BID
     Route: 048
  2. MIMPARA [Suspect]
     Indication: HYPOCALCAEMIA

REACTIONS (1)
  - Non-cardiac chest pain [Unknown]
